FAERS Safety Report 12863684 (Version 1)
Quarter: 2016Q4

REPORT INFORMATION
  Report Type: Spontaneous
  Country: US (occurrence: US)
  Receive Date: 20161019
  Receipt Date: 20161019
  Transmission Date: 20170207
  Serious: No
  Sender: FDA-Public Use
  Company Number: US-INCYTE CORPORATION-2016IN006439

PATIENT
  Age: 61 Year
  Sex: Male

DRUGS (14)
  1. COLCRYS [Concomitant]
     Active Substance: COLCHICINE
  2. ZETIA [Concomitant]
     Active Substance: EZETIMIBE
  3. DIOVAN [Concomitant]
     Active Substance: VALSARTAN
  4. HUMALOG [Concomitant]
     Active Substance: INSULIN LISPRO
  5. HORIZANT [Concomitant]
     Active Substance: GABAPENTIN ENACARBIL
  6. NORVASC [Concomitant]
     Active Substance: AMLODIPINE BESYLATE
  7. JAKAFI [Suspect]
     Active Substance: RUXOLITINIB
     Dosage: 10 MG, QD
     Route: 048
     Dates: start: 2016
  8. DILAUDID [Concomitant]
     Active Substance: HYDROMORPHONE HYDROCHLORIDE
  9. JAKAFI [Suspect]
     Active Substance: RUXOLITINIB
     Indication: POLYCYTHAEMIA VERA
     Dosage: 10 MG, QD
     Dates: start: 20160912
  10. DYAZIDE [Concomitant]
     Active Substance: HYDROCHLOROTHIAZIDE\TRIAMTERENE
  11. JAKAFI [Suspect]
     Active Substance: RUXOLITINIB
     Dosage: 10 MG, BID
     Route: 048
     Dates: start: 201609
  12. TAMSULOSIN [Concomitant]
     Active Substance: TAMSULOSIN
  13. AMBIEN [Concomitant]
     Active Substance: ZOLPIDEM TARTRATE
  14. ASPIRIN                            /00002701/ [Concomitant]
     Active Substance: ASPIRIN
     Dosage: UNK

REACTIONS (7)
  - Dysphagia [Unknown]
  - Nausea [Unknown]
  - Eating disorder symptom [Unknown]
  - Nasopharyngitis [Unknown]
  - Nasal congestion [Unknown]
  - Cough [Unknown]
  - Oropharyngeal pain [Unknown]

NARRATIVE: CASE EVENT DATE: 201609
